FAERS Safety Report 8895573 (Version 2)
Quarter: 2012Q4

REPORT INFORMATION
  Report Type: 
  Country: FR (occurrence: FR)
  Receive Date: 20121108
  Receipt Date: 20121129
  Transmission Date: 20130627
  Serious: Yes (Other)
  Sender: FDA-Public Use
  Company Number: FR-GLAXOSMITHKLINE-B0841867A

PATIENT
  Age: 46 Year
  Sex: Female

DRUGS (1)
  1. SERETIDE [Suspect]
     Indication: ASTHMA
     Route: 055
     Dates: start: 20121028, end: 20121029

REACTIONS (3)
  - Cough [Recovered/Resolved]
  - Asthmatic crisis [Recovered/Resolved]
  - Product quality issue [Unknown]
